FAERS Safety Report 17045111 (Version 2)
Quarter: 2020Q1

REPORT INFORMATION
  Report Type: Spontaneous
  Country: US (occurrence: US)
  Receive Date: 20191118
  Receipt Date: 20200102
  Transmission Date: 20200409
  Serious: No
  Sender: FDA-Public Use
  Company Number: US-AMGEN INC.-USASP2019187916

PATIENT
  Age: 21 Year
  Sex: Female

DRUGS (1)
  1. AIMOVIG [Suspect]
     Active Substance: ERENUMAB-AOOE
     Indication: MIGRAINE
     Dosage: 70 MILLIGRAM, QMO
     Route: 065
     Dates: start: 201907

REACTIONS (3)
  - Accidental exposure to product [Unknown]
  - Incorrect dose administered by device [Unknown]
  - Device issue [Unknown]

NARRATIVE: CASE EVENT DATE: 20191101
